FAERS Safety Report 6204437-X (Version None)
Quarter: 2009Q2

REPORT INFORMATION
  Report Type: 
  Country: None (occurrence: None)
  Receive Date: 20090527
  Receipt Date: 20090514
  Transmission Date: 20091009
  Serious: Yes (Life-Threatening)
  Sender: FDA-Public Use
  Company Number: JP-PFIZER INC-2009205285

PATIENT
  Age: 50 Year

DRUGS (7)
  1. SUNITINIB MALATE [Suspect]
     Indication: GASTROINTESTINAL STROMAL TUMOUR
     Dosage: 50 MG, DAILY
     Route: 048
     Dates: start: 20090411, end: 20090416
  2. LASIX [Concomitant]
     Dosage: UNK
     Route: 048
     Dates: end: 20090417
  3. LENDORMIN [Concomitant]
     Dosage: UNK
     Route: 048
     Dates: end: 20090417
  4. DAI-KENCHU-TO [Concomitant]
     Dosage: UNK
     Route: 048
     Dates: end: 20090417
  5. RIZE [Concomitant]
     Dosage: UNK
     Route: 048
     Dates: end: 20090417
  6. DEPAS [Concomitant]
     Dosage: UNK
     Route: 048
     Dates: end: 20090417
  7. GASMOTIN [Concomitant]
     Dosage: UNK
     Route: 048
     Dates: end: 20090417

REACTIONS (8)
  - DISSEMINATED INTRAVASCULAR COAGULATION [None]
  - FALL [None]
  - HEPATIC FUNCTION ABNORMAL [None]
  - HYPOTENSION [None]
  - PNEUMONIA STAPHYLOCOCCAL [None]
  - PULMONARY HAEMORRHAGE [None]
  - RENAL DISORDER [None]
  - RESPIRATORY ARREST [None]
